FAERS Safety Report 19087098 (Version 2)
Quarter: 2021Q4

REPORT INFORMATION
  Report Type: Report from Study
  Country: AU (occurrence: AU)
  Receive Date: 20210402
  Receipt Date: 20211103
  Transmission Date: 20220303
  Serious: Yes (Hospitalization)
  Sender: FDA-Public Use
  Company Number: AU-ABBVIE-21P-008-3819991-00

PATIENT
  Age: 73 Year
  Sex: Female
  Weight: 75.3 kg

DRUGS (14)
  1. VENETOCLAX [Suspect]
     Active Substance: VENETOCLAX
     Indication: Acute myeloid leukaemia
     Route: 048
     Dates: start: 20201019, end: 20210312
  2. VENETOCLAX [Suspect]
     Active Substance: VENETOCLAX
     Route: 048
  3. PRACINOSTAT [Concomitant]
     Active Substance: PRACINOSTAT
     Indication: Acute myeloid leukaemia
     Route: 048
     Dates: start: 20201028, end: 20210311
  4. AMOXICILLIN\CLAVULANATE POTASSIUM [Concomitant]
     Active Substance: AMOXICILLIN\CLAVULANATE POTASSIUM
     Indication: Respiratory syncytial virus infection
     Dosage: 875/125MG
     Route: 048
     Dates: start: 20210310, end: 20210312
  5. AMOXICILLIN\CLAVULANATE POTASSIUM [Concomitant]
     Active Substance: AMOXICILLIN\CLAVULANATE POTASSIUM
     Indication: Neutropenia
  6. ALLOHEXAL (ALLOPURINOL) [Concomitant]
     Indication: Prophylaxis
     Route: 048
     Dates: start: 20201011
  7. NIVESTIM (FILGRASTIM) [Concomitant]
     Indication: White blood cell count decreased
     Dosage: 300 MICROGRAM/0.5ML
     Route: 058
     Dates: start: 20210310
  8. PANTOPRAZOLE [Concomitant]
     Active Substance: PANTOPRAZOLE
     Indication: Gastrooesophageal reflux disease
     Route: 048
  9. NOXAFIL [Concomitant]
     Active Substance: POSACONAZOLE
     Indication: Antifungal treatment
     Route: 048
  10. BACTRIM [Concomitant]
     Active Substance: SULFAMETHOXAZOLE\TRIMETHOPRIM
     Indication: Product used for unknown indication
  11. VALACYCLOVIR HYDROCHLORIDE [Concomitant]
     Active Substance: VALACYCLOVIR HYDROCHLORIDE
     Indication: Product used for unknown indication
  12. FASENRA PEN (BENRALIZUMAB) [Concomitant]
     Indication: Asthma
     Dosage: 30MG/1ML
     Route: 058
  13. ENDONE (OXYCODONE) [Concomitant]
     Indication: Pain
     Dosage: HALF TAB 4X PER DAY
  14. SYMBICORT [Concomitant]
     Active Substance: BUDESONIDE\FORMOTEROL FUMARATE DIHYDRATE
     Indication: Chronic obstructive pulmonary disease
     Dosage: 400MCG/12MCG
     Route: 055

REACTIONS (1)
  - Respiratory syncytial virus infection [Recovered/Resolved]

NARRATIVE: CASE EVENT DATE: 20210312
